FAERS Safety Report 9832112 (Version 1)
Quarter: 2014Q1

REPORT INFORMATION
  Report Type: Spontaneous
  Country: US (occurrence: US)
  Receive Date: 20140121
  Receipt Date: 20140121
  Transmission Date: 20141002
  Serious: Yes (Hospitalization)
  Sender: FDA-Public Use
  Company Number: US-SA-2014SA007242

PATIENT
  Age: 57 Year
  Sex: Male
  Weight: 71 kg

DRUGS (3)
  1. PLAVIX [Suspect]
     Indication: PRODUCT USED FOR UNKNOWN INDICATION
     Route: 048
  2. XARELTO [Suspect]
     Indication: DEEP VEIN THROMBOSIS
     Route: 048
     Dates: start: 20131228
  3. AMIODARONE [Concomitant]
     Route: 048
     Dates: start: 20131224

REACTIONS (1)
  - International normalised ratio increased [Recovering/Resolving]
